FAERS Safety Report 5425438-5 (Version None)
Quarter: 2007Q3

REPORT INFORMATION
  Report Type: 
  Country: None (occurrence: None)
  Receive Date: 20070824
  Receipt Date: 20070815
  Transmission Date: 20080115
  Serious: Yes (Other)
  Sender: FDA-Public Use
  Company Number: US-PFIZER INC-2007044052

PATIENT
  Sex: Male
  Weight: 77.1 kg

DRUGS (1)
  1. CELEBREX [Suspect]
     Dosage: TEXT:THREE TO FOUR TIMES DAILY

REACTIONS (4)
  - CARDIOVASCULAR DISORDER [None]
  - CEREBROVASCULAR ACCIDENT [None]
  - MYOCARDIAL INFARCTION [None]
  - NECK INJURY [None]
